FAERS Safety Report 11976713 (Version 1)
Quarter: 2016Q1

REPORT INFORMATION
  Report Type: Spontaneous
  Country: US (occurrence: US)
  Receive Date: 20160129
  Receipt Date: 20160129
  Transmission Date: 20160526
  Serious: No
  Sender: FDA-Public Use
  Company Number: US-BAUSCH-BL-2015-010801

PATIENT
  Sex: Male
  Weight: 77.18 kg

DRUGS (1)
  1. PENLAC [Suspect]
     Active Substance: CICLOPIROX
     Indication: FUNGAL INFECTION
     Dosage: APPLIED ONCE DAILY TO 4 TOENAILS
     Route: 061
     Dates: start: 20150213

REACTIONS (1)
  - Drug ineffective [Not Recovered/Not Resolved]
